FAERS Safety Report 10530115 (Version 1)
Quarter: 2014Q4

REPORT INFORMATION
  Report Type: Spontaneous
  Country: US (occurrence: US)
  Receive Date: 20141021
  Receipt Date: 20141021
  Transmission Date: 20150528
  Serious: No
  Sender: FDA-Public Use
  Company Number: US-PFIZER INC-2014286183

PATIENT
  Age: 43 Year
  Sex: Female
  Weight: 83.45 kg

DRUGS (3)
  1. CHANTIX [Suspect]
     Active Substance: VARENICLINE TARTRATE
     Indication: SMOKING CESSATION THERAPY
     Dosage: 0.5 MG, UNK
     Dates: start: 20141008, end: 201410
  2. CHANTIX [Suspect]
     Active Substance: VARENICLINE TARTRATE
     Dosage: 1 MG, 2X/DAY
     Dates: start: 201410
  3. CHANTIX [Suspect]
     Active Substance: VARENICLINE TARTRATE
     Dosage: 1 MG, UNK
     Dates: start: 201410

REACTIONS (6)
  - Thinking abnormal [Unknown]
  - Activities of daily living impaired [Unknown]
  - Hostility [Unknown]
  - Fatigue [Not Recovered/Not Resolved]
  - Anger [Unknown]
  - Somnolence [Unknown]

NARRATIVE: CASE EVENT DATE: 20141008
